FAERS Safety Report 5465602-2 (Version None)
Quarter: 2007Q3

REPORT INFORMATION
  Report Type: 
  Country: None (occurrence: None)
  Receive Date: 20070924
  Receipt Date: 20070918
  Transmission Date: 20080115
  Serious: Yes (Life-Threatening, Hospitalization, Other)
  Sender: FDA-Public Use
  Company Number: CN-AVENTIS-200718527GDDC

PATIENT
  Age: 58 Year
  Sex: Male
  Weight: 43 kg

DRUGS (2)
  1. TAXOTERE [Suspect]
     Route: 042
     Dates: start: 20070814, end: 20070912
  2. CISPLATIN [Suspect]
     Route: 042
     Dates: start: 20070814, end: 20070912

REACTIONS (12)
  - ANAEMIA [None]
  - FATIGUE [None]
  - GRANULOCYTOPENIA [None]
  - HAEMATEMESIS [None]
  - HAEMORRHAGE [None]
  - HYPOKALAEMIA [None]
  - HYPOMAGNESAEMIA [None]
  - HYPONATRAEMIA [None]
  - HYPOTENSION [None]
  - LEUKOPENIA [None]
  - MELAENA [None]
  - THROMBOCYTOPENIA [None]
